FAERS Safety Report 23836208 (Version 1)
Quarter: 2024Q2

REPORT INFORMATION
  Report Type: Spontaneous
  Country: CN (occurrence: CN)
  Receive Date: 20240509
  Receipt Date: 20240509
  Transmission Date: 20240716
  Serious: No
  Sender: FDA-Public Use
  Company Number: CN-PFIZER INC-PV202400059013

PATIENT
  Age: 7 Year
  Sex: Female
  Weight: 20 kg

DRUGS (1)
  1. METHYLPREDNISOLONE SODIUM SUCCINATE [Suspect]
     Active Substance: METHYLPREDNISOLONE SODIUM SUCCINATE
     Indication: Pneumonia
     Dosage: 40 ML, 1X/DAY
     Route: 041
     Dates: start: 20240410, end: 20240410

REACTIONS (3)
  - Poor quality product administered [Unknown]
  - Product impurity [Unknown]
  - Off label use [Unknown]

NARRATIVE: CASE EVENT DATE: 20240410
